FAERS Safety Report 24684478 (Version 1)
Quarter: 2024Q4

REPORT INFORMATION
  Report Type: Report from Study
  Country: GB (occurrence: GB)
  Receive Date: 20241202
  Receipt Date: 20241202
  Transmission Date: 20250115
  Serious: Yes (Other)
  Sender: CELLTRION
  Company Number: GB-CELLTRION INC.-2024GB030075

PATIENT

DRUGS (1)
  1. ADALIMUMAB-AATY [Suspect]
     Active Substance: ADALIMUMAB-AATY
     Indication: Rheumatoid arthritis
     Dosage: 40 MG PEN PK2
     Route: 058
     Dates: start: 202410, end: 202411

REACTIONS (5)
  - Angina pectoris [Unknown]
  - Arthropathy [Unknown]
  - Condition aggravated [Unknown]
  - Ill-defined disorder [Unknown]
  - Dizziness [Unknown]
